FAERS Safety Report 18188111 (Version 1)
Quarter: 2020Q3

REPORT INFORMATION
  Report Type: Spontaneous
  Country: AU (occurrence: AU)
  Receive Date: 20200824
  Receipt Date: 20200824
  Transmission Date: 20201103
  Serious: Yes (Other)
  Sender: FDA-Public Use
  Company Number: AU-AMERICAN REGENT INC-2020001735

PATIENT
  Sex: Female

DRUGS (1)
  1. FERINJECT [Suspect]
     Active Substance: FERRIC CARBOXYMALTOSE
     Indication: PRODUCT USED FOR UNKNOWN INDICATION
     Dosage: 1 GRAM

REACTIONS (8)
  - Musculoskeletal stiffness [Recovered/Resolved]
  - Muscle rigidity [Recovered/Resolved]
  - Adverse reaction [Recovered/Resolved]
  - Eye movement disorder [Recovered/Resolved]
  - Hypertension [Recovered/Resolved]
  - Serum ferritin decreased [Unknown]
  - Abdominal pain [Recovered/Resolved]
  - Blood iron decreased [Unknown]
